FAERS Safety Report 8474012-5 (Version None)
Quarter: 2012Q2

REPORT INFORMATION
  Report Type: 
  Country: None (occurrence: None)
  Receive Date: 20120628
  Receipt Date: 20120416
  Transmission Date: 20120825
  Serious: Yes (Other)
  Sender: FDA-Public Use
  Company Number: US-MYLANLABS-2012S1006371

PATIENT
  Age: 62 Year
  Sex: Male

DRUGS (9)
  1. CLOZAPINE [Suspect]
     Indication: SCHIZOPHRENIA, PARANOID TYPE
     Dates: end: 20120320
  2. CLOZAPINE [Suspect]
     Dates: end: 20120320
  3. ERBITUX [Suspect]
     Dates: start: 20111011
  4. CARBOPLATIN [Suspect]
     Dates: start: 20120306
  5. ERBITUX [Suspect]
     Indication: LARYNGEAL CANCER
     Dates: start: 20111101
  6. CARBOPLATIN [Suspect]
     Indication: LARYNGEAL CANCER
     Dates: start: 20120207
  7. CARBOPLATIN [Suspect]
     Dates: start: 20120410
  8. FLUOROURACIL [Suspect]
     Indication: LARYNGEAL CANCER
     Dates: start: 20111101
  9. FLUOROURACIL [Suspect]
     Dates: start: 20111011

REACTIONS (2)
  - GRANULOCYTOPENIA [None]
  - LEUKOPENIA [None]
